FAERS Safety Report 5445697-2 (Version None)
Quarter: 2007Q3

REPORT INFORMATION
  Report Type: 
  Country: None (occurrence: None)
  Receive Date: 20070904
  Receipt Date: 20070824
  Transmission Date: 20080115
  Serious: Yes (Hospitalization)
  Sender: FDA-Public Use
  Company Number: 2007RL000381

PATIENT
  Age: 83 Year
  Sex: Female
  Weight: 71.6683 kg

DRUGS (7)
  1. LOVAZA [Suspect]
     Indication: DRUG USE FOR UNKNOWN INDICATION
     Dosage: 1 GM; PO
     Route: 048
     Dates: end: 20070802
  2. TRIAMTERENE AND HYDROCHLOROTHIAZIDE [Suspect]
     Indication: HYPERTENSION
     Dosage: QD; PO
     Route: 048
     Dates: start: 19990101
  3. LEVOTHYROXINE SODIUM [Concomitant]
  4. PREVACID [Concomitant]
  5. LOTREL /01289101/ [Concomitant]
  6. PLAVIX [Concomitant]
  7. AMIODARONE HCL [Concomitant]

REACTIONS (7)
  - ASTHENIA [None]
  - DIZZINESS [None]
  - FALL [None]
  - FATIGUE [None]
  - JOINT SPRAIN [None]
  - NECK PAIN [None]
  - VISUAL ACUITY REDUCED [None]
